FAERS Safety Report 23907191 (Version 1)
Quarter: 2024Q2

REPORT INFORMATION
  Report Type: Report from Study
  Country: US (occurrence: US)
  Receive Date: 20240528
  Receipt Date: 20240528
  Transmission Date: 20240716
  Serious: Yes (Other)
  Sender: FDA-Public Use
  Company Number: US-JNJFOC-20240556458

PATIENT
  Sex: Male

DRUGS (2)
  1. SPRAVATO [Suspect]
     Active Substance: ESKETAMINE
     Indication: Depression
     Dates: start: 202102
  2. APLENZIN [Concomitant]
     Active Substance: BUPROPION HYDROBROMIDE

REACTIONS (5)
  - Altered state of consciousness [Unknown]
  - Fatigue [Unknown]
  - Anxiety [Unknown]
  - Nightmare [Unknown]
  - Adverse drug reaction [Unknown]

NARRATIVE: CASE EVENT DATE: 20210101
